FAERS Safety Report 4764153-8 (Version None)
Quarter: 2005Q3

REPORT INFORMATION
  Report Type: 
  Country: None (occurrence: None)
  Receive Date: 20050906
  Receipt Date: 20050622
  Transmission Date: 20060218
  Serious: No
  Sender: FDA-Public Use
  Company Number: 2005-BP-10554BP

PATIENT
  Sex: Female

DRUGS (2)
  1. SPIRIVA [Suspect]
     Dosage: 18 MCG ((18 MCG, QD), IH
     Route: 055
  2. COUMADIN [Concomitant]

REACTIONS (2)
  - HEADACHE [None]
  - MEDICATION ERROR [None]
